FAERS Safety Report 7484231-2 (Version None)
Quarter: 2011Q2

REPORT INFORMATION
  Report Type: 
  Country: None (occurrence: None)
  Receive Date: 20110513
  Receipt Date: 20110513
  Transmission Date: 20111010
  Serious: Yes (Disabling, Other)
  Sender: FDA-Public Use
  Company Number: None

PATIENT
  Age: 54 Year
  Sex: Female
  Weight: 62.5964 kg

DRUGS (1)
  1. CIPROFLOXACIN [Suspect]
     Indication: CYSTITIS
     Dosage: 500MG. 2 TIMES A DAY PO
     Route: 048
     Dates: start: 20110505, end: 20110511

REACTIONS (10)
  - GAIT DISTURBANCE [None]
  - PARAESTHESIA [None]
  - PALPITATIONS [None]
  - TENDON DISORDER [None]
  - ASTHENIA [None]
  - JOINT CREPITATION [None]
  - DEPRESSION [None]
  - CRYING [None]
  - HYPOAESTHESIA [None]
  - DYSPNOEA [None]
